FAERS Safety Report 17392458 (Version 1)
Quarter: 2020Q1

REPORT INFORMATION
  Report Type: Spontaneous
  Country: NL (occurrence: NL)
  Receive Date: 20200207
  Receipt Date: 20200207
  Transmission Date: 20200409
  Serious: Yes (Hospitalization, Other)
  Sender: FDA-Public Use
  Company Number: NVSC2020NL028793

PATIENT
  Age: 61 Year
  Sex: Male

DRUGS (8)
  1. ACETYLSALICYLIC ACID [Suspect]
     Active Substance: ASPIRIN
     Indication: CEREBROVASCULAR ACCIDENT
  2. ACETYLSALICYLIC ACID [Suspect]
     Active Substance: ASPIRIN
     Indication: STENT PLACEMENT
  3. PRASUGREL. [Suspect]
     Active Substance: PRASUGREL
     Indication: STENT PLACEMENT
  4. ACETYLSALICYLIC ACID [Suspect]
     Active Substance: ASPIRIN
     Indication: CAROTID ARTERY OCCLUSION
     Dosage: 100 MG, QD
     Route: 048
  5. ACETYLSALICYLIC ACID [Suspect]
     Active Substance: ASPIRIN
     Indication: CAROTID ARTERY STENT INSERTION
  6. PRASUGREL. [Suspect]
     Active Substance: PRASUGREL
     Indication: CAROTID ARTERY OCCLUSION
     Dosage: 5 MG, QD
     Route: 048
  7. PRASUGREL. [Suspect]
     Active Substance: PRASUGREL
     Indication: CEREBROVASCULAR ACCIDENT
  8. PRASUGREL. [Suspect]
     Active Substance: PRASUGREL
     Indication: CAROTID ARTERY STENT INSERTION

REACTIONS (1)
  - Device occlusion [Unknown]
